FAERS Safety Report 6089422-3 (Version None)
Quarter: 2009Q1

REPORT INFORMATION
  Report Type: 
  Country: None (occurrence: None)
  Receive Date: 20090224
  Receipt Date: 20090219
  Transmission Date: 20090719
  Serious: Yes (Other)
  Sender: FDA-Public Use
  Company Number: US-ALLERGAN-0902193US

PATIENT
  Sex: Female

DRUGS (2)
  1. TAZORAC CREAM UNSPECIFIED [Suspect]
     Indication: ACNE
     Dosage: UNK, QD
     Route: 061
     Dates: end: 20090216
  2. PLAQUENIL [Concomitant]
     Indication: IMMUNE SYSTEM DISORDER
     Dosage: UNK, UNK

REACTIONS (2)
  - APOPTOSIS [None]
  - THYROID NEOPLASM [None]
